FAERS Safety Report 15332531 (Version 1)
Quarter: 2018Q3

REPORT INFORMATION
  Report Type: Report from Study
  Country: None (occurrence: US)
  Receive Date: 20180830
  Receipt Date: 20180830
  Transmission Date: 20181010
  Serious: Yes (Hospitalization)
  Sender: FDA-Public Use
  Company Number: US-ABBVIE-18K-163-2466535-00

PATIENT
  Age: 34 Year
  Sex: Female

DRUGS (1)
  1. HUMIRA [Suspect]
     Active Substance: ADALIMUMAB
     Indication: PRODUCT USED FOR UNKNOWN INDICATION
     Route: 058
     Dates: start: 20180806, end: 201808

REACTIONS (5)
  - Oropharyngeal pain [Unknown]
  - Swelling face [Unknown]
  - Peripheral swelling [Unknown]
  - Injection site reaction [Unknown]
  - Sinusitis [Unknown]

NARRATIVE: CASE EVENT DATE: 201808
